FAERS Safety Report 6195310-4 (Version None)
Quarter: 2009Q2

REPORT INFORMATION
  Report Type: 
  Country: None (occurrence: None)
  Receive Date: 20090519
  Receipt Date: 20090512
  Transmission Date: 20091009
  Serious: Yes (Hospitalization)
  Sender: FDA-Public Use
  Company Number: US-ELI_LILLY_AND_COMPANY-US200905002256

PATIENT
  Sex: Female

DRUGS (2)
  1. HUMALOG [Suspect]
     Dosage: UNK, AS NEEDED
     Dates: start: 20081001
  2. HUMULIN R [Suspect]
     Dosage: UNK, AS NEEDED
     Dates: start: 20081001

REACTIONS (2)
  - BLOOD GLUCOSE DECREASED [None]
  - MULTIPLE SCLEROSIS [None]
